FAERS Safety Report 7922669-7 (Version None)
Quarter: 2011Q4

REPORT INFORMATION
  Report Type: 
  Country: None (occurrence: None)
  Receive Date: 20111117
  Receipt Date: 20110204
  Transmission Date: 20120403
  Serious: No
  Sender: FDA-Public Use
  Company Number: US-ALLERGAN-1101640US

PATIENT
  Age: 70 Year
  Sex: Male

DRUGS (2)
  1. COMBIGAN [Suspect]
     Indication: INTRAOCULAR PRESSURE INCREASED
  2. COMBIGAN [Suspect]
     Indication: GLAUCOMA
     Dosage: 2 GTT, BID
     Route: 047
     Dates: start: 20101101, end: 20110103

REACTIONS (4)
  - OCULAR HYPERAEMIA [None]
  - EYE PAIN [None]
  - EYE SWELLING [None]
  - EYE PRURITUS [None]
